FAERS Safety Report 11082199 (Version 2)
Quarter: 2015Q2

REPORT INFORMATION
  Report Type: Spontaneous
  Country: US (occurrence: US)
  Receive Date: 20150501
  Receipt Date: 20150515
  Transmission Date: 20150821
  Serious: Yes (Death, Hospitalization, Other)
  Sender: FDA-Public Use
  Company Number: US-ACTELION-A-US2015-116943

PATIENT
  Age: 46 Year
  Sex: Male

DRUGS (10)
  1. RIOCIGUAT [Concomitant]
     Active Substance: RIOCIGUAT
  2. METOLAZONE. [Concomitant]
     Active Substance: METOLAZONE
  3. VELETRI [Suspect]
     Active Substance: EPOPROSTENOL
     Indication: PULMONARY ARTERIAL HYPERTENSION
     Dosage: 48 NG/KG, PER MIN
     Route: 042
     Dates: end: 20150412
  4. LIPITOR [Concomitant]
     Active Substance: ATORVASTATIN CALCIUM
  5. LASIX [Concomitant]
     Active Substance: FUROSEMIDE
  6. PREDNISONE. [Concomitant]
     Active Substance: PREDNISONE
  7. COUMADIN [Concomitant]
     Active Substance: WARFARIN SODIUM
  8. ALDACTONE [Concomitant]
     Active Substance: SPIRONOLACTONE
  9. ALLOPURINOL. [Concomitant]
     Active Substance: ALLOPURINOL
  10. KCL [Concomitant]
     Active Substance: POTASSIUM CHLORIDE

REACTIONS (9)
  - Pulseless electrical activity [Fatal]
  - Sepsis [Unknown]
  - Blood culture negative [Unknown]
  - Pneumonia [Unknown]
  - Hypoxia [Unknown]
  - Leukocytosis [Unknown]
  - Pulmonary arterial hypertension [Fatal]
  - Right ventricular failure [Fatal]
  - Pyrexia [Unknown]

NARRATIVE: CASE EVENT DATE: 20150405
